FAERS Safety Report 25549014 (Version 1)
Quarter: 2025Q3

REPORT INFORMATION
  Report Type: Spontaneous
  Country: US (occurrence: None)
  Receive Date: 20250711
  Receipt Date: 20250711
  Transmission Date: 20251021
  Serious: No
  Sender: FDA-CTU
  Company Number: None

PATIENT
  Sex: Male

DRUGS (1)
  1. ADAKVEO [Suspect]
     Active Substance: CRIZANLIZUMAB-TMCA
     Indication: Sickle cell anaemia
     Dosage: 217 MG/ML EVERY 4 WEEKS INTRAVENOUS?
     Route: 042
     Dates: start: 20250506

REACTIONS (1)
  - Adverse drug reaction [None]
